FAERS Safety Report 8485194-3 (Version None)
Quarter: 2012Q3

REPORT INFORMATION
  Report Type: 
  Country: None (occurrence: None)
  Receive Date: 20120703
  Receipt Date: 20120626
  Transmission Date: 20120928
  Serious: Yes (Other)
  Sender: FDA-Public Use
  Company Number: DE-US-EMD SERONO, INC.-7143618

PATIENT
  Age: 50 Year
  Sex: Female

DRUGS (1)
  1. REBIF [Suspect]
     Indication: MULTIPLE SCLEROSIS
     Route: 058

REACTIONS (6)
  - COORDINATION ABNORMAL [None]
  - INFLUENZA LIKE ILLNESS [None]
  - OPTIC NEURITIS [None]
  - GAIT DISTURBANCE [None]
  - INSOMNIA [None]
  - MALAISE [None]
